FAERS Safety Report 5317831-6 (Version None)
Quarter: 2007Q2

REPORT INFORMATION
  Report Type: 
  Country: None (occurrence: None)
  Receive Date: 20070430
  Receipt Date: 20070416
  Transmission Date: 20071010
  Serious: Yes (Hospitalization)
  Sender: FDA-Public Use
  Company Number: B0467348A

PATIENT
  Age: 79 Year
  Sex: Female

DRUGS (6)
  1. FLUTICASONE PROPIONATE (FORMULATION UNKNOWN) (FLUTICASONE PROPIONATE) [Suspect]
  2. BISACODYL (FORMULATION UNKNOWN) (BISACODYL) (GENERIC) [Suspect]
  3. BROTIZOLAM (FORMULATION UNKNOWN) (BROTIZOLAM) [Suspect]
  4. GLYCERIN (FORMULATION UNKNOWN) (GLYCERIN) [Suspect]
  5. NITROGLYCERINE (FORMULATION UNKNOWN) (NITROGLYCERIN) [Suspect]
  6. THEOPHYLLINE [Suspect]

REACTIONS (2)
  - DISTURBANCE IN ATTENTION [None]
  - DRUG TOXICITY [None]
